FAERS Safety Report 8199597-8 (Version None)
Quarter: 2012Q1

REPORT INFORMATION
  Report Type: 
  Country: None (occurrence: None)
  Receive Date: 20120310
  Receipt Date: 20120227
  Transmission Date: 20120608
  Serious: Yes (Death, Other)
  Sender: FDA-Public Use
  Company Number: DE-BRISTOL-MYERS SQUIBB COMPANY-16445314

PATIENT
  Age: 60 Year
  Sex: Male

DRUGS (6)
  1. ANTI-THYMOCYTE GLOBULIN NOS [Suspect]
     Indication: ACUTE MYELOID LEUKAEMIA
  2. CYCLOSPORINE [Suspect]
     Indication: ACUTE MYELOID LEUKAEMIA
  3. CLOFARABINE [Suspect]
     Indication: ACUTE MYELOID LEUKAEMIA
  4. CYTARABINE [Suspect]
     Indication: ACUTE MYELOID LEUKAEMIA
  5. MYCOPHENOLATE MOFETIL [Suspect]
     Indication: ACUTE MYELOID LEUKAEMIA
  6. CYCLOPHOSPHAMIDE [Suspect]
     Indication: ACUTE MYELOID LEUKAEMIA

REACTIONS (12)
  - DEATH [None]
  - MUCOSAL INFLAMMATION [None]
  - DECREASED APPETITE [None]
  - NAUSEA [None]
  - APLASIA [None]
  - PALMAR-PLANTAR ERYTHRODYSAESTHESIA SYNDROME [None]
  - TRANSAMINASES INCREASED [None]
  - BLOOD BILIRUBIN INCREASED [None]
  - CYSTITIS HAEMORRHAGIC [None]
  - VOMITING [None]
  - OEDEMA [None]
  - NEPHROPATHY TOXIC [None]
